FAERS Safety Report 6505972-7 (Version None)
Quarter: 2009Q4

REPORT INFORMATION
  Report Type: 
  Country: None (occurrence: None)
  Receive Date: 20091217
  Receipt Date: 20091217
  Transmission Date: 20100525
  Serious: Yes (Life-Threatening, Hospitalization)
  Sender: FDA-Public Use
  Company Number: None

PATIENT

DRUGS (2)
  1. ALTEPLASE 2MG GENENTECH [Suspect]
     Dosage: 2MG 1 TIME IV
     Route: 042
     Dates: start: 20090601
  2. ALOXI [Suspect]
     Dosage: 0.25MG 1 TIME IV
     Route: 042
     Dates: start: 20090601

REACTIONS (1)
  - DYSPNOEA [None]
